FAERS Safety Report 24937632 (Version 1)
Quarter: 2025Q1

REPORT INFORMATION
  Report Type: Spontaneous
  Country: US (occurrence: US)
  Receive Date: 20250206
  Receipt Date: 20250206
  Transmission Date: 20250409
  Serious: Yes (Hospitalization)
  Sender: VERTEX
  Company Number: US-VERTEX PHARMACEUTICALS-2025-001801

PATIENT
  Age: 36 Year
  Sex: Female

DRUGS (1)
  1. TRIKAFTA [Suspect]
     Active Substance: ELEXACAFTOR\IVACAFTOR\TEZACAFTOR
     Indication: Cystic fibrosis
     Route: 048
     Dates: end: 20250129

REACTIONS (2)
  - Lung disorder [Recovering/Resolving]
  - Exercise tolerance decreased [Recovering/Resolving]

NARRATIVE: CASE EVENT DATE: 20240315
